FAERS Safety Report 4638337-3 (Version None)
Quarter: 2005Q2

REPORT INFORMATION
  Report Type: 
  Country: None (occurrence: None)
  Receive Date: 20050415
  Receipt Date: 20050405
  Transmission Date: 20051028
  Serious: Yes (Other)
  Sender: FDA-Public Use
  Company Number: CIP05000659

PATIENT
  Age: 70 Year
  Sex: Female

DRUGS (5)
  1. ACTONEL [Suspect]
     Indication: OSTEOPOROSIS
     Dosage: SEE IMAGE
     Route: 048
     Dates: end: 20050216
  2. ACTONEL [Suspect]
     Indication: OSTEOPOROSIS
     Dosage: SEE IMAGE
     Route: 048
     Dates: start: 20050101
  3. ONE-ALPHA (ALFACALCIDOL) [Suspect]
  4. ASPARA-CA (ASPARTATE CALCIUM) [Suspect]
  5. HERBAL PREPARATION [Concomitant]
     Indication: CONSTIPATION

REACTIONS (3)
  - JAUNDICE [None]
  - OEDEMA [None]
  - OEDEMA PERIPHERAL [None]
